FAERS Safety Report 9748231 (Version 3)
Quarter: 2013Q4

REPORT INFORMATION
  Report Type: Spontaneous
  Country: US (occurrence: US)
  Receive Date: 20131212
  Receipt Date: 20131227
  Transmission Date: 20140711
  Serious: Yes (Death, Other)
  Sender: FDA-Public Use
  Company Number: US-ROCHE-1308562

PATIENT
  Age: 88 Year
  Sex: Female

DRUGS (2)
  1. XELODA [Suspect]
     Indication: RECTAL CANCER
     Dosage: 2 TABLETS TWICE A DAY
     Route: 065
     Dates: start: 20120616
  2. XELODA [Suspect]
     Route: 065
     Dates: start: 20131122

REACTIONS (4)
  - Procedural complication [Fatal]
  - Intestinal obstruction [Unknown]
  - Erythema [Unknown]
  - Diarrhoea [Unknown]
